FAERS Safety Report 20997878 (Version 1)
Quarter: 2022Q2

REPORT INFORMATION
  Report Type: Spontaneous
  Country: AU (occurrence: AU)
  Receive Date: 20220623
  Receipt Date: 20220623
  Transmission Date: 20220721
  Serious: Yes (Hospitalization)
  Sender: FDA-Public Use
  Company Number: AU-MYLANLABS-2022M1047184

PATIENT
  Age: 29 Year
  Sex: Female

DRUGS (2)
  1. PENICILLAMINE [Suspect]
     Active Substance: PENICILLAMINE
     Indication: Hepato-lenticular degeneration
     Dosage: UNK
     Route: 065
  2. PFIZER-BIONTECH COVID-19 VACCINE [Suspect]
     Active Substance: TOZINAMERAN
     Indication: Immunisation
     Dosage: UNK
     Route: 065

REACTIONS (1)
  - Type IV hypersensitivity reaction [Recovering/Resolving]
